FAERS Safety Report 10261075 (Version 1)
Quarter: 2014Q2

REPORT INFORMATION
  Report Type: Spontaneous
  Country: US (occurrence: None)
  Receive Date: 20140623
  Receipt Date: 20140623
  Transmission Date: 20141212
  Serious: Yes (Other)
  Sender: FDA-Public Use
  Company Number: UNT-2014-002472

PATIENT
  Age: 51 Year
  Sex: Female
  Weight: 104.3 kg

DRUGS (2)
  1. TYVASO (TREPROSTINIL SODIUM) INHALATION GAS, 0.6MG/ML [Suspect]
     Indication: COR PULMONALE CHRONIC
     Dosage: 3 TO 9 BREATHS
     Route: 055
     Dates: start: 20130913
  2. SILDENAFIL (SILDENAFIL) [Concomitant]

REACTIONS (2)
  - Ligament rupture [None]
  - Dyspnoea [None]
